FAERS Safety Report 20337077 (Version 4)
Quarter: 2022Q1

REPORT INFORMATION
  Report Type: Spontaneous
  Country: IL (occurrence: None)
  Receive Date: 20220114
  Receipt Date: 20220309
  Transmission Date: 20220423
  Serious: Yes (Hospitalization, Other)
  Sender: FDA-Public Use
  Company Number: IL-Eisai Medical Research-EC-2022-106520

PATIENT
  Age: 57 Year
  Sex: Male

DRUGS (2)
  1. LENVIMA [Suspect]
     Active Substance: LENVATINIB
     Indication: Papillary thyroid cancer
     Route: 048
     Dates: start: 20211223, end: 202201
  2. LENVIMA [Suspect]
     Active Substance: LENVATINIB
     Route: 048
     Dates: start: 202201

REACTIONS (3)
  - Leukaemia [Not Recovered/Not Resolved]
  - Ejection fraction decreased [Unknown]
  - Myocardial injury [Unknown]

NARRATIVE: CASE EVENT DATE: 20220101
